FAERS Safety Report 5254017-8 (Version None)
Quarter: 2007Q1

REPORT INFORMATION
  Report Type: 
  Country: None (occurrence: None)
  Receive Date: 20061201
  Receipt Date: 20060814
  Transmission Date: 20070707
  Serious: No
  Sender: FDA-Public Use
  Company Number: 2006PV019388

PATIENT
  Age: 61 Year
  Sex: Female
  Weight: 81.6475 kg

DRUGS (4)
  1. BYETTA [Suspect]
     Indication: DIABETES MELLITUS NON-INSULIN-DEPENDENT
     Dosage: 5 MCG;QD;SC
     Route: 058
     Dates: start: 20060808, end: 20060808
  2. GLUCOPHAGE [Concomitant]
  3. STARLIX [Concomitant]
  4. AMARYL [Concomitant]

REACTIONS (3)
  - FEELING JITTERY [None]
  - IRRITABILITY [None]
  - NAUSEA [None]
